FAERS Safety Report 8614441-X (Version None)
Quarter: 2012Q3

REPORT INFORMATION
  Report Type: 
  Country: None (occurrence: None)
  Receive Date: 20120823
  Receipt Date: 20120817
  Transmission Date: 20120928
  Serious: Yes (Other)
  Sender: FDA-Public Use
  Company Number: PHHY2012CA071974

PATIENT
  Sex: Male

DRUGS (1)
  1. SANDOSTATIN LAR [Suspect]
     Indication: RENAL CANCER
     Dosage: 20 MG EVERY FOUR WEEKS
     Route: 030
     Dates: start: 20120531, end: 20120726

REACTIONS (1)
  - TERMINAL STATE [None]
